FAERS Safety Report 23433057 (Version 1)
Quarter: 2024Q1

REPORT INFORMATION
  Report Type: Spontaneous
  Country: US (occurrence: US)
  Receive Date: 20240123
  Receipt Date: 20240123
  Transmission Date: 20240410
  Serious: Yes (Other)
  Sender: FDA-Public Use
  Company Number: US-PFIZER INC-202400016506

PATIENT
  Age: 38 Year
  Sex: Male

DRUGS (3)
  1. CARBOPLATIN [Suspect]
     Active Substance: CARBOPLATIN
     Indication: Histiocytic sarcoma
     Dosage: UNK, CYCLIC
  2. ETOPOSIDE [Suspect]
     Active Substance: ETOPOSIDE
     Indication: Histiocytic sarcoma
     Dosage: UNK, CYCLIC
  3. IFOSFAMIDE [Suspect]
     Active Substance: IFOSFAMIDE
     Indication: Histiocytic sarcoma
     Dosage: UNK, CYCLIC

REACTIONS (2)
  - Seizure [Unknown]
  - Off label use [Unknown]
